FAERS Safety Report 13116785 (Version 6)
Quarter: 2017Q1

REPORT INFORMATION
  Report Type: Spontaneous
  Country: JP (occurrence: JP)
  Receive Date: 20170116
  Receipt Date: 20170322
  Transmission Date: 20170428
  Serious: Yes (Hospitalization)
  Sender: FDA-Public Use
  Company Number: JP-BEH-2017077049

PATIENT
  Age: 29 Month
  Sex: Male
  Weight: 12.2 kg

DRUGS (10)
  1. PREDNISOLONE. [Suspect]
     Active Substance: PREDNISOLONE
     Indication: NEPHROTIC SYNDROME
     Dosage: 20 MG, QOD
     Route: 065
  2. ALBUMINAR-25 [Suspect]
     Active Substance: ALBUMIN HUMAN
     Indication: BLOOD ALBUMIN DECREASED
  3. SOLITA T                           /05663301/ [Concomitant]
  4. LASIX [Suspect]
     Active Substance: FUROSEMIDE
     Indication: ASCITES
     Dosage: 0.65A, QD
     Route: 042
     Dates: start: 20130528, end: 20130531
  5. ALFACALCIDOL [Suspect]
     Active Substance: ALFACALCIDOL
     Indication: OSTEOPOROSIS PROPHYLAXIS
     Dosage: 0.05 ?G/KG, QD
     Route: 065
  6. ALBUMINAR-25 [Suspect]
     Active Substance: ALBUMIN HUMAN
     Indication: ASCITES
     Dosage: 50 ML, QD
     Route: 042
     Dates: start: 20130531, end: 20130531
  7. PREDNISOLONE. [Suspect]
     Active Substance: PREDNISOLONE
     Dosage: 30 MG, QD
     Route: 065
  8. CYCLOSPORIN A [Suspect]
     Active Substance: CYCLOSPORINE
     Dosage: 5 MG/KG, BID
     Route: 065
  9. METHYLPREDNISOLONE. [Suspect]
     Active Substance: METHYLPREDNISOLONE
     Indication: PRODUCT USED FOR UNKNOWN INDICATION
     Dosage: 2.4V PER DAY
     Route: 042
     Dates: start: 20130523, end: 20130523
  10. LASIX [Suspect]
     Active Substance: FUROSEMIDE
     Indication: URINE OUTPUT DECREASED

REACTIONS (3)
  - Abdominal pain lower [Recovered/Resolved]
  - Haematuria [Recovered/Resolved]
  - Calculus bladder [Recovered/Resolved]

NARRATIVE: CASE EVENT DATE: 201306
